FAERS Safety Report 16271920 (Version 2)
Quarter: 2019Q3

REPORT INFORMATION
  Report Type: Spontaneous
  Country: RU (occurrence: RU)
  Receive Date: 20190503
  Receipt Date: 20190702
  Transmission Date: 20191004
  Serious: Yes (Hospitalization, Congenital Anomaly, Other)
  Sender: FDA-Public Use
  Company Number: RU-NOVOPROD-659781

PATIENT
  Sex: Male
  Weight: 3.2 kg

DRUGS (1)
  1. ACTRAPID [Suspect]
     Active Substance: INSULIN HUMAN
     Indication: GESTATIONAL DIABETES
     Dosage: 4 IU, QD
     Route: 064
     Dates: start: 20181207, end: 20190227

REACTIONS (5)
  - Neonatal hypoxia [Recovered/Resolved]
  - Umbilical cord around neck [Recovered/Resolved]
  - Brain oedema [Not Recovered/Not Resolved]
  - Jaundice neonatal [Recovered/Resolved]
  - Foetal exposure during pregnancy [Recovered/Resolved]

NARRATIVE: CASE EVENT DATE: 20181207
